FAERS Safety Report 12935259 (Version 1)
Quarter: 2016Q4

REPORT INFORMATION
  Report Type: Spontaneous
  Country: US (occurrence: US)
  Receive Date: 20161114
  Receipt Date: 20161114
  Transmission Date: 20170207
  Serious: No
  Sender: FDA-Public Use
  Company Number: US-JAZZ-2016-US-018354

PATIENT
  Sex: Female

DRUGS (52)
  1. NUCYNTA [Suspect]
     Active Substance: TAPENTADOL HYDROCHLORIDE
     Dosage: 100 MG
     Dates: start: 20160625, end: 20160731
  2. FLONASE ALLERGY RLF                   /00908302/ [Concomitant]
  3. DOXYCYCLINE HYCLATE. [Concomitant]
     Active Substance: DOXYCYCLINE HYCLATE
  4. PREDNISONE. [Concomitant]
     Active Substance: PREDNISONE
  5. DIAZEPAM. [Concomitant]
     Active Substance: DIAZEPAM
  6. DICLOFENAC SOD.CO [Concomitant]
  7. ONDANSETRON [Concomitant]
     Active Substance: ONDANSETRON
  8. PROAIR HFA [Concomitant]
     Active Substance: ALBUTEROL SULFATE
  9. AFRIN [Concomitant]
     Active Substance: OXYMETAZOLINE
  10. FERROUS SULFATE. [Concomitant]
     Active Substance: FERROUS SULFATE
  11. CELEXA [Concomitant]
     Active Substance: CITALOPRAM HYDROBROMIDE
  12. KEFLEX [Concomitant]
     Active Substance: CEPHALEXIN
  13. ZOLPIDEM TARTATE [Concomitant]
     Active Substance: ZOLPIDEM TARTRATE
  14. PANTOPRAZOLE SODIUM. [Concomitant]
     Active Substance: PANTOPRAZOLE SODIUM
  15. MULTIVITAMINS PLUS IRON [Concomitant]
  16. COENZYME Q10 [Concomitant]
     Active Substance: UBIDECARENONE
  17. FISH OIL [Concomitant]
     Active Substance: FISH OIL
  18. ALBUTEROL                          /00139501/ [Concomitant]
     Active Substance: ALBUTEROL
  19. XYREM [Suspect]
     Active Substance: SODIUM OXYBATE
     Dosage: DOSE ADJUSTMENTS
     Route: 048
     Dates: start: 201411, end: 201605
  20. LEXAPRO [Concomitant]
     Active Substance: ESCITALOPRAM OXALATE
  21. VITAMIN D3 [Concomitant]
     Active Substance: CHOLECALCIFEROL
  22. LEVAQUIN [Concomitant]
     Active Substance: LEVOFLOXACIN
  23. ASPIRIN                            /00002701/ [Concomitant]
     Active Substance: ASPIRIN
  24. SIMVASTATIN. [Concomitant]
     Active Substance: SIMVASTATIN
  25. XYREM [Suspect]
     Active Substance: SODIUM OXYBATE
     Indication: SLEEP DISORDER
     Dosage: 0.75 G, BID
     Route: 048
     Dates: start: 201410, end: 201411
  26. XYREM [Suspect]
     Active Substance: SODIUM OXYBATE
     Dosage: 3.5 G, FIRST DOSE
     Route: 048
     Dates: start: 201605
  27. LIDOCAINE. [Concomitant]
     Active Substance: LIDOCAINE
  28. TAMSULOSIN HCL [Concomitant]
     Active Substance: TAMSULOSIN
  29. TYLENOL ARTHRITIS PAIN [Concomitant]
     Active Substance: ACETAMINOPHEN
  30. RITALIN [Concomitant]
     Active Substance: METHYLPHENIDATE HYDROCHLORIDE
  31. AMBIEN CR [Concomitant]
     Active Substance: ZOLPIDEM TARTRATE
  32. XYREM [Suspect]
     Active Substance: SODIUM OXYBATE
     Dosage: 4 G, SECOND DOSE
     Route: 048
     Dates: start: 201605
  33. OCEAN SALINE NASAL SPRAY [Concomitant]
     Active Substance: SODIUM CHLORIDE
  34. RIBOFLAVIN [Concomitant]
     Active Substance: RIBOFLAVIN
  35. TRIAMCINOLONE [Concomitant]
     Active Substance: TRIAMCINOLONE
  36. ALPRAZOLAM. [Concomitant]
     Active Substance: ALPRAZOLAM
  37. HYDROCODONE BITARTRATE AND ACETAMINOPHEN [Concomitant]
     Active Substance: ACETAMINOPHEN\HYDROCODONE BITARTRATE
  38. PHENERGAN [Concomitant]
     Active Substance: PROMETHAZINE HYDROCHLORIDE
  39. VITAMIN B2                         /00154901/ [Concomitant]
  40. PROTONIX                           /00661201/ [Concomitant]
     Active Substance: OMEPRAZOLE
  41. TIZANIDINE HCL [Concomitant]
     Active Substance: TIZANIDINE HYDROCHLORIDE
  42. METHYLPHENIDATE. [Concomitant]
     Active Substance: METHYLPHENIDATE
  43. ALLEGRA ALLERGY [Concomitant]
     Active Substance: FEXOFENADINE HYDROCHLORIDE
  44. VITAMIN D                          /00107901/ [Concomitant]
     Active Substance: ERGOCALCIFEROL
  45. LEVOFLOXACIN. [Concomitant]
     Active Substance: LEVOFLOXACIN
  46. FLONASE                            /00908302/ [Concomitant]
     Active Substance: MOMETASONE FUROATE
  47. XANAX [Concomitant]
     Active Substance: ALPRAZOLAM
  48. NUCYNTA [Suspect]
     Active Substance: TAPENTADOL HYDROCHLORIDE
     Indication: PRODUCT USED FOR UNKNOWN INDICATION
     Dosage: 50 MG
     Dates: start: 20151203, end: 20160131
  49. NASCOBAL [Concomitant]
     Active Substance: CYANOCOBALAMIN
  50. ZYRTEC [Concomitant]
     Active Substance: CETIRIZINE HYDROCHLORIDE
  51. VICODIN [Concomitant]
     Active Substance: ACETAMINOPHEN\HYDROCODONE BITARTRATE
  52. BOTOX [Concomitant]
     Active Substance: ONABOTULINUMTOXINA

REACTIONS (2)
  - Depression [Unknown]
  - Drug ineffective [Unknown]
